FAERS Safety Report 7412134-8 (Version None)
Quarter: 2011Q2

REPORT INFORMATION
  Report Type: 
  Country: None (occurrence: None)
  Receive Date: 20110413
  Receipt Date: 20110408
  Transmission Date: 20111010
  Serious: Yes (Other)
  Sender: FDA-Public Use
  Company Number: US-BAYER-2011-031537

PATIENT
  Age: 55 Year
  Sex: Female

DRUGS (3)
  1. OCELLA [Suspect]
  2. YASMIN [Suspect]
  3. YAZ [Suspect]
     Dosage: UNK

REACTIONS (3)
  - EMOTIONAL DISTRESS [None]
  - INJURY [None]
  - DEEP VEIN THROMBOSIS [None]
